FAERS Safety Report 7378190-0 (Version None)
Quarter: 2011Q1

REPORT INFORMATION
  Report Type: 
  Country: None (occurrence: None)
  Receive Date: 20110328
  Receipt Date: 20110316
  Transmission Date: 20110831
  Serious: Yes (Hospitalization)
  Sender: FDA-Public Use
  Company Number: A0892636A

PATIENT
  Age: 60 Year
  Sex: Male
  Weight: 141.8 kg

DRUGS (1)
  1. AVANDIA [Suspect]
     Indication: DIABETES MELLITUS
     Dosage: 4MG PER DAY
     Route: 048
     Dates: start: 20070112, end: 20100331

REACTIONS (2)
  - CONGESTIVE CARDIOMYOPATHY [None]
  - ACUTE MYOCARDIAL INFARCTION [None]
